FAERS Safety Report 8487643-3 (Version None)
Quarter: 2012Q3

REPORT INFORMATION
  Report Type: 
  Country: None (occurrence: None)
  Receive Date: 20120705
  Receipt Date: 20120628
  Transmission Date: 20120928
  Serious: Yes (Hospitalization)
  Sender: FDA-Public Use
  Company Number: US-BAYER-2011-011689

PATIENT
  Age: 33 Year
  Sex: Female
  Weight: 74.83 kg

DRUGS (16)
  1. YASMIN [Suspect]
     Indication: CONTRACEPTION
     Dosage: UNK
     Dates: start: 20050101, end: 20071001
  2. YASMIN [Suspect]
     Indication: DYSMENORRHOEA
     Dosage: UNK
     Dates: start: 20081001, end: 20090101
  3. DROSPIRENONE AND ETHINYL ESTRADIOL [Suspect]
     Indication: CONTRACEPTION
     Dosage: UNK
     Dates: start: 20050101, end: 20070101
  4. ATIVAN [Concomitant]
     Indication: ANXIETY
     Dosage: 0.25 MG
  5. ZITHROMAX [Concomitant]
  6. DOXYCYCLINE HYCLATE [Concomitant]
     Dosage: 100 MG BID FOR 7 DAYS
  7. LEXAPRO [Concomitant]
     Indication: DEPRESSION
     Dosage: 10 MG
  8. DROSPIRENONE AND ETHINYL ESTRADIOL [Suspect]
     Dosage: UNK
     Dates: start: 20081001, end: 20090101
  9. ANTIBIOTICS [Concomitant]
     Indication: PNEUMONIA
     Route: 042
  10. IBUPROFEN [Concomitant]
  11. PROPOXYPHENE HCL [Concomitant]
  12. LEXAPRO [Concomitant]
     Indication: ANXIETY
  13. MULTI-VITAMINS [Concomitant]
     Indication: MEDICAL DIET
     Dosage: UNK
     Dates: start: 20070101
  14. ACETAMINOPHEN [Concomitant]
     Dosage: 650 MG
  15. ALBUTEROL [Concomitant]
  16. CEFTIN [Concomitant]
     Dosage: 500 MG

REACTIONS (5)
  - DEEP VEIN THROMBOSIS [None]
  - EMOTIONAL DISTRESS [None]
  - PULMONARY EMBOLISM [None]
  - PAIN [None]
  - ANXIETY [None]
